FAERS Safety Report 15097824 (Version 1)
Quarter: 2018Q3

REPORT INFORMATION
  Report Type: Spontaneous
  Country: US (occurrence: US)
  Receive Date: 20180702
  Receipt Date: 20180702
  Transmission Date: 20181010
  Serious: No
  Sender: FDA-Public Use
  Company Number: US-PFM-2017-07143

PATIENT

DRUGS (6)
  1. HEMANGEOL [Suspect]
     Active Substance: PROPRANOLOL HYDROCHLORIDE
     Indication: ULCERATED HAEMANGIOMA
     Dosage: 0.9 ML, BID (2/DAY)
     Route: 048
     Dates: start: 201708, end: 201708
  2. GRANIX [Concomitant]
     Active Substance: TBO-FILGRASTIM
     Indication: ULCERATED HAEMANGIOMA
     Dosage: UNK, UNKNOWN
     Route: 065
  3. HEMANGEOL [Suspect]
     Active Substance: PROPRANOLOL HYDROCHLORIDE
     Dosage: 2.4 ML, BID (2/DAY)
     Route: 048
     Dates: start: 201708
  4. METROGEL [Concomitant]
     Active Substance: METRONIDAZOLE
     Indication: ULCERATED HAEMANGIOMA
     Dosage: UNK UNK, UNKNOWN
     Route: 061
  5. LIDOCAINE. [Concomitant]
     Active Substance: LIDOCAINE
     Indication: ULCERATED HAEMANGIOMA
     Dosage: UNK, UNKNOWN
     Route: 061
  6. HEMANGEOL [Suspect]
     Active Substance: PROPRANOLOL HYDROCHLORIDE
     Dosage: 1.8 ML, BID (2/DAY)
     Route: 048
     Dates: start: 201708, end: 201708

REACTIONS (1)
  - Upper respiratory tract infection [Recovered/Resolved]
